FAERS Safety Report 9303291 (Version 1)
Quarter: 2013Q2

REPORT INFORMATION
  Report Type: Spontaneous
  Country: FR (occurrence: FR)
  Receive Date: 20130522
  Receipt Date: 20130522
  Transmission Date: 20140414
  Serious: Yes (Other)
  Sender: FDA-Public Use
  Company Number: FR-AMGEN-FRACT2013035389

PATIENT
  Age: 52 Year
  Sex: Male

DRUGS (2)
  1. ENBREL [Suspect]
     Indication: ANKYLOSING SPONDYLITIS
     Dosage: UNK
  2. METHOTREXATE [Concomitant]
     Dosage: UNK

REACTIONS (3)
  - Hyporeflexia [Recovering/Resolving]
  - Chronic inflammatory demyelinating polyradiculoneuropathy [Recovering/Resolving]
  - Paraesthesia [Recovering/Resolving]
